FAERS Safety Report 11294785 (Version 1)
Quarter: 2015Q3

REPORT INFORMATION
  Report Type: Spontaneous
  Country: US (occurrence: None)
  Receive Date: 20150722
  Receipt Date: 20150722
  Transmission Date: 20151125
  Serious: Yes (Hospitalization, Disabling, Other)
  Sender: FDA-Public Use
  Company Number: None

PATIENT
  Age: 62 Year
  Sex: Male
  Weight: 72.58 kg

DRUGS (2)
  1. DECADRON [Suspect]
     Active Substance: DEXAMETHASONE
     Indication: EPIDURAL ANALGESIA
     Dates: start: 20150504
  2. SUMITRIPTAN [Concomitant]

REACTIONS (5)
  - Poor quality sleep [None]
  - Delusion [None]
  - Anxiety [None]
  - Restlessness [None]
  - Off label use [None]

NARRATIVE: CASE EVENT DATE: 20150504
